FAERS Safety Report 10032832 (Version 1)
Quarter: 2014Q1

REPORT INFORMATION
  Report Type: Spontaneous
  Country: FR (occurrence: FR)
  Receive Date: 20140324
  Receipt Date: 20140324
  Transmission Date: 20141002
  Serious: Yes (Hospitalization)
  Sender: FDA-Public Use
  Company Number: FR-PFIZER INC-2014077353

PATIENT
  Age: 46 Year
  Sex: Male

DRUGS (5)
  1. DALACINE [Suspect]
     Dosage: UNK
     Dates: start: 20140105, end: 20140118
  2. AUGMENTIN [Suspect]
     Dosage: UNK
     Dates: start: 20131226, end: 20131227
  3. CIFLOX [Suspect]
     Dosage: UNK
     Dates: start: 20131226, end: 20131227
  4. ORBENINE [Suspect]
     Dosage: UNK
     Dates: start: 20131227, end: 20140105
  5. OFLOCET [Suspect]
     Dosage: UNK
     Dates: start: 20131227, end: 20140118

REACTIONS (2)
  - Renal failure acute [Recovering/Resolving]
  - Vascular purpura [Recovered/Resolved]
